FAERS Safety Report 19309025 (Version 2)
Quarter: 2021Q2

REPORT INFORMATION
  Report Type: Other
  Country: GR (occurrence: GR)
  Receive Date: 20210526
  Receipt Date: 20210608
  Transmission Date: 20210717
  Serious: Yes (Other)
  Sender: FDA-Public Use
  Company Number: GR-ROCHE-2836975

PATIENT
  Age: 44 Year
  Sex: Female

DRUGS (15)
  1. LEVETIRACETAM. [Suspect]
     Active Substance: LEVETIRACETAM
     Route: 042
  2. MIDAZOLAM. [Concomitant]
     Active Substance: MIDAZOLAM
     Indication: ANALGESIC THERAPY
  3. TOPIRAMATE. [Suspect]
     Active Substance: TOPIRAMATE
     Indication: MULTIPLE SCLEROSIS
     Dosage: 100 MILLIGRAM, ONCE DAILY (QD)
     Route: 065
  4. FENTANYL. [Concomitant]
     Active Substance: FENTANYL
     Indication: ANALGESIC THERAPY
     Dosage: UNKNOWN DOSE
  5. CLINDAMYCIN. [Concomitant]
     Active Substance: CLINDAMYCIN
     Dosage: 600 MILLIGRAM, 3X/DAY (TID)
     Route: 042
  6. DIAZEPAM. [Suspect]
     Active Substance: DIAZEPAM
     Indication: SEIZURE
     Route: 042
  7. TOPIRAMATE. [Suspect]
     Active Substance: TOPIRAMATE
     Indication: SEIZURE
     Dosage: 100 MILLIGRAM, ONCE DAILY (QD)
     Route: 065
  8. AMPICILLIN [Concomitant]
     Active Substance: AMPICILLIN
     Dosage: 3 GRAM, 2X/12 HOURS
     Route: 042
  9. LEVETIRACETAM. [Suspect]
     Active Substance: LEVETIRACETAM
     Indication: SEIZURE
     Route: 040
  10. PROPOFOL. [Concomitant]
     Active Substance: PROPOFOL
     Indication: ANALGESIC THERAPY
  11. LEVETIRACETAM. [Suspect]
     Active Substance: LEVETIRACETAM
     Route: 042
  12. LEVETIRACETAM. [Suspect]
     Active Substance: LEVETIRACETAM
     Route: 042
  13. NATALIZUMAB [Suspect]
     Active Substance: NATALIZUMAB
     Indication: MULTIPLE SCLEROSIS
     Dosage: 300 MILLIGRAM, Q 28D
     Route: 042
  14. REMIFENTANIL [Concomitant]
     Active Substance: REMIFENTANIL
     Indication: ANALGESIC THERAPY
     Dosage: UNKNOWN DOSE
  15. BROMAZEPAM [Suspect]
     Active Substance: BROMAZEPAM
     Indication: MULTIPLE SCLEROSIS
     Dosage: 3 MG 1/1 HOUR(S) (3 MG, Q1HR (LAST 4YEARS))
     Route: 048

REACTIONS (6)
  - Tachycardia [Unknown]
  - Hypotension [Unknown]
  - Off label use [Unknown]
  - Pyrexia [Recovered/Resolved]
  - Bradypnoea [Unknown]
  - Tremor [Recovered/Resolved]
